FAERS Safety Report 20657120 (Version 1)
Quarter: 2022Q1

REPORT INFORMATION
  Report Type: Report from Study
  Country: BR (occurrence: BR)
  Receive Date: 20220331
  Receipt Date: 20220331
  Transmission Date: 20220423
  Serious: Yes (Disabling, Other)
  Sender: FDA-Public Use
  Company Number: BR-ABBVIE-22K-020-4283781-00

PATIENT
  Sex: Female
  Weight: 67 kg

DRUGS (5)
  1. RINVOQ [Suspect]
     Active Substance: UPADACITINIB
     Indication: Rheumatoid arthritis
     Route: 048
  2. RINVOQ [Suspect]
     Active Substance: UPADACITINIB
     Route: 048
  3. LAVITAN [Concomitant]
     Indication: Product used for unknown indication
  4. CYCLOBENZAPRINE HYDROCHLORIDE [Concomitant]
     Active Substance: CYCLOBENZAPRINE HYDROCHLORIDE
     Indication: Pain
  5. BUTYLSCOPOLAMINE BROMIDE [Concomitant]
     Active Substance: BUTYLSCOPOLAMINE BROMIDE
     Indication: Product used for unknown indication

REACTIONS (21)
  - Musculoskeletal disorder [Unknown]
  - Muscle spasms [Recovering/Resolving]
  - COVID-19 [Recovered/Resolved]
  - Cardiovascular disorder [Unknown]
  - Peripheral coldness [Unknown]
  - Eye pain [Unknown]
  - Asthenia [Recovered/Resolved]
  - Weight decreased [Recovered/Resolved]
  - Swelling [Recovered/Resolved]
  - Fluid retention [Recovered/Resolved]
  - Renal pain [Unknown]
  - Hypophagia [Unknown]
  - Confusional state [Recovering/Resolving]
  - Dizziness [Recovered/Resolved]
  - Anxiety [Recovering/Resolving]
  - Panic reaction [Recovering/Resolving]
  - Pain in extremity [Unknown]
  - Paraesthesia [Unknown]
  - Feeling hot [Unknown]
  - Head discomfort [Recovering/Resolving]
  - Chest discomfort [Recovering/Resolving]

NARRATIVE: CASE EVENT DATE: 20220101
